FAERS Safety Report 20794874 (Version 1)
Quarter: 2022Q2

REPORT INFORMATION
  Report Type: Spontaneous
  Country: IN (occurrence: None)
  Receive Date: 20220506
  Receipt Date: 20220506
  Transmission Date: 20220721
  Serious: Yes (Other)
  Sender: FDA-Public Use
  Company Number: 2022A175061

PATIENT
  Age: 44 Year
  Sex: Female

DRUGS (3)
  1. QUETIAPINE [Suspect]
     Active Substance: QUETIAPINE
     Dosage: 25 MG BT
     Route: 048
     Dates: start: 20180221
  2. ACETYLSALICYLIC ACID/ATORVASTATIN [Concomitant]
     Dosage: 150/20) OD
     Route: 048
  3. PHENYTOIN SODIUM [Concomitant]
     Active Substance: PHENYTOIN SODIUM
     Dosage: 300 MG OD SINCE LAST 2 MONTHS
     Route: 048

REACTIONS (1)
  - Drug reaction with eosinophilia and systemic symptoms [Recovering/Resolving]

NARRATIVE: CASE EVENT DATE: 20180306
